FAERS Safety Report 14240141 (Version 1)
Quarter: 2017Q4

REPORT INFORMATION
  Report Type: Spontaneous
  Country: US (occurrence: US)
  Receive Date: 20171129
  Receipt Date: 20171129
  Transmission Date: 20180321
  Serious: No
  Sender: FDA-Public Use
  Company Number: None

PATIENT
  Age: 63 Year
  Sex: Male

DRUGS (1)
  1. ACYCLOVIR. [Suspect]
     Active Substance: ACYCLOVIR
     Route: 048
     Dates: start: 20171017, end: 20171129

REACTIONS (2)
  - Product substitution issue [None]
  - Unevaluable event [None]

NARRATIVE: CASE EVENT DATE: 20171129
